FAERS Safety Report 8918949 (Version 1)
Quarter: 2012Q4

REPORT INFORMATION
  Report Type: 
  Country: US (occurrence: US)
  Receive Date: 20121121
  Receipt Date: 20121121
  Transmission Date: 20130627
  Serious: Yes (Other)
  Sender: FDA-Public Use
  Company Number: US-JNJFOC-20121106266

PATIENT
  Sex: Male

DRUGS (12)
  1. STELARA [Suspect]
     Indication: PSORIASIS
     Route: 058
     Dates: start: 20110928, end: 20110928
  2. STELARA [Suspect]
     Indication: PSORIASIS
     Route: 058
     Dates: start: 20111026, end: 20111026
  3. STELARA [Suspect]
     Indication: PSORIASIS
     Route: 058
     Dates: start: 20120125, end: 20120125
  4. STELARA [Suspect]
     Indication: PSORIASIS
     Route: 058
     Dates: start: 20120423, end: 20120423
  5. STELARA [Suspect]
     Indication: PSORIASIS
     Route: 058
     Dates: start: 20120730, end: 20120730
  6. LASIX [Concomitant]
     Route: 065
  7. COUMADIN [Concomitant]
     Route: 065
  8. POTASSIUM [Concomitant]
     Route: 065
  9. ALDACTONE [Concomitant]
     Route: 065
  10. PRINIVIL [Concomitant]
     Route: 065
  11. SIMVASTATIN [Concomitant]
     Route: 065
  12. CARTEOLOL [Concomitant]
     Route: 065

REACTIONS (1)
  - Transient ischaemic attack [Unknown]
